FAERS Safety Report 4668898-X (Version None)
Quarter: 2005Q2

REPORT INFORMATION
  Report Type: 
  Country: None (occurrence: None)
  Receive Date: 20050523
  Receipt Date: 20041021
  Transmission Date: 20051028
  Serious: Yes (Other)
  Sender: FDA-Public Use
  Company Number: PHBS2004BR13976

PATIENT
  Age: 47 Year
  Sex: Female

DRUGS (2)
  1. CHEMOTHERAPEUTICS,OTHER [Concomitant]
     Route: 065
  2. ZOMETA [Suspect]
     Indication: BREAST CANCER STAGE I

REACTIONS (4)
  - ASEPTIC NECROSIS BONE [None]
  - BONE TRIMMING [None]
  - PROSTHESIS USER [None]
  - TOOTH EXTRACTION [None]
